FAERS Safety Report 8218448-6 (Version None)
Quarter: 2012Q1

REPORT INFORMATION
  Report Type: 
  Country: None (occurrence: None)
  Receive Date: 20120319
  Receipt Date: 20120316
  Transmission Date: 20120608
  Serious: No
  Sender: FDA-Public Use
  Company Number: US-PFIZER INC-2012058484

PATIENT
  Sex: Female
  Weight: 68 kg

DRUGS (7)
  1. CHANTIX [Suspect]
     Dosage: UNK
     Route: 048
     Dates: start: 20120314
  2. ALPRAZOLAM [Concomitant]
     Indication: ANXIETY
     Dosage: UNK, AS NEEDED
  3. ALPRAZOLAM [Concomitant]
     Indication: PANIC ATTACK
  4. CHANTIX [Suspect]
     Indication: SMOKING CESSATION THERAPY
     Dosage: 0.5 MG, DAILY
     Route: 048
     Dates: start: 20120303, end: 20120301
  5. CHANTIX [Suspect]
     Dosage: UNK
     Route: 048
     Dates: start: 20120301, end: 20120301
  6. CIMETIDINE [Concomitant]
     Indication: GASTROOESOPHAGEAL REFLUX DISEASE
     Dosage: 400 MG, 2X/DAY
  7. RECLAST [Concomitant]
     Indication: OSTEOPOROSIS
     Dosage: UNK, YEARLY
     Route: 042

REACTIONS (9)
  - ABDOMINAL DISCOMFORT [None]
  - ILL-DEFINED DISORDER [None]
  - INSOMNIA [None]
  - DRY MOUTH [None]
  - FEELING ABNORMAL [None]
  - MALAISE [None]
  - BACK PAIN [None]
  - DECREASED APPETITE [None]
  - DEPRESSED MOOD [None]
